FAERS Safety Report 7419570-4 (Version None)
Quarter: 2011Q1

REPORT INFORMATION
  Report Type: 
  Country: None (occurrence: None)
  Receive Date: 20110302
  Receipt Date: 20110107
  Transmission Date: 20110831
  Serious: Yes (Hospitalization)
  Sender: FDA-Public Use
  Company Number: 025124

PATIENT
  Sex: Female
  Weight: 66 kg

DRUGS (7)
  1. VITAMIN B-12 [Concomitant]
  2. SYNTHROID [Concomitant]
  3. CIMZIA [Suspect]
     Indication: CROHN'S DISEASE
     Dosage: 400 MG 1X/MONTH SUBCUTANEOUS
     Route: 058
     Dates: start: 20100312
  4. LIBRAX [Concomitant]
  5. BENTYL [Concomitant]
  6. WELCHOL [Concomitant]
  7. NEXIUM [Concomitant]

REACTIONS (3)
  - INTESTINAL OBSTRUCTION [None]
  - UPPER RESPIRATORY TRACT INFECTION [None]
  - ARTHRALGIA [None]
